FAERS Safety Report 5669860-0 (Version None)
Quarter: 2008Q1

REPORT INFORMATION
  Report Type: 
  Country: None (occurrence: None)
  Receive Date: 20080314
  Receipt Date: 20080314
  Transmission Date: 20080703
  Serious: Yes (Hospitalization)
  Sender: FDA-Public Use
  Company Number: None

PATIENT
  Sex: Female
  Weight: 65.9 kg

DRUGS (2)
  1. TEMOZOLOMIDE [Suspect]
     Dosage: 1560 MG
  2. DEXAMETHASONE [Concomitant]

REACTIONS (3)
  - HYPERGLYCAEMIA [None]
  - PNEUMONIA ASPIRATION [None]
  - URINARY TRACT INFECTION [None]
